FAERS Safety Report 5738485-0 (Version None)
Quarter: 2008Q2

REPORT INFORMATION
  Report Type: 
  Country: None (occurrence: None)
  Receive Date: 20080513
  Receipt Date: 20080429
  Transmission Date: 20081010
  Serious: Yes (Death)
  Sender: FDA-Public Use
  Company Number: 2008AL002878

PATIENT
  Age: 68 Year
  Sex: Female

DRUGS (2)
  1. DIGOXIN [Suspect]
     Indication: CARDIAC FAILURE
     Dosage: ORAL
     Route: 048
     Dates: end: 20070912
  2. TOTAL PARENTERAL NUTRITION (PARENTERAL NUTRITION) [Concomitant]

REACTIONS (7)
  - ANOREXIA [None]
  - DIARRHOEA [None]
  - HEADACHE [None]
  - MALNUTRITION [None]
  - NAUSEA [None]
  - VISUAL DISTURBANCE [None]
  - VOMITING [None]
